FAERS Safety Report 8321031-5 (Version None)
Quarter: 2012Q2

REPORT INFORMATION
  Report Type: 
  Country: None (occurrence: None)
  Receive Date: 20120430
  Receipt Date: 20120412
  Transmission Date: 20120825
  Serious: No
  Sender: FDA-Public Use
  Company Number: US-JNJFOC-20120406651

PATIENT

DRUGS (2)
  1. PALIPERIDONE [Suspect]
     Indication: SCHIZOAFFECTIVE DISORDER
     Route: 030
  2. ALPRAZOLAM [Concomitant]
     Route: 065

REACTIONS (1)
  - RESTLESS LEGS SYNDROME [None]
